FAERS Safety Report 7631931-7 (Version None)
Quarter: 2011Q3

REPORT INFORMATION
  Report Type: 
  Country: None (occurrence: None)
  Receive Date: 20110725
  Receipt Date: 20110513
  Transmission Date: 20111222
  Serious: No
  Sender: FDA-Public Use
  Company Number: US-BRISTOL-MYERS SQUIBB COMPANY-15745342

PATIENT
  Age: 79 Year
  Sex: Male

DRUGS (5)
  1. METOPROLOL TARTRATE [Concomitant]
  2. ASPIRIN [Concomitant]
  3. SIMVASTATIN [Concomitant]
  4. LISINOPRIL [Concomitant]
  5. COUMADIN [Suspect]
     Indication: ATRIAL FIBRILLATION
     Dosage: 5 MG FOR 5 DAYS AND 2.5 MG FOR 2 DAYS

REACTIONS (1)
  - INTERNATIONAL NORMALISED RATIO INCREASED [None]
